FAERS Safety Report 9814693 (Version 2)
Quarter: 2014Q1

REPORT INFORMATION
  Report Type: Spontaneous
  Country: US (occurrence: US)
  Receive Date: 20140113
  Receipt Date: 20140113
  Transmission Date: 20141002
  Serious: Yes (Hospitalization, Other)
  Sender: FDA-Public Use
  Company Number: US-SANOFI-AVENTIS-2012SA093888

PATIENT
  Age: 43 Year
  Sex: Female
  Weight: 82 kg

DRUGS (21)
  1. TAXOTERE [Suspect]
     Indication: BREAST CANCER
     Route: 042
     Dates: start: 20121004
  2. CARBOPLATIN [Suspect]
     Indication: BREAST CANCER
     Dosage: DOSE- 6 AUC
     Route: 042
     Dates: start: 20121004
  3. TRASTUZUMAB [Concomitant]
     Indication: BREAST CANCER
     Route: 042
     Dates: start: 20121004
  4. TRASTUZUMAB [Concomitant]
     Indication: BREAST CANCER
     Route: 042
     Dates: start: 20121025
  5. PERTUZUMAB [Concomitant]
     Indication: BREAST CANCER
     Route: 042
     Dates: start: 20121004
  6. FERROUS SULPHATE [Concomitant]
     Dates: start: 20121004
  7. IBUPROFEN [Concomitant]
     Indication: PAIN
     Dosage: DOSE: 400-800MG (2 IN 1 D)
     Dates: start: 20120817
  8. TYLENOL [Concomitant]
     Indication: PREMEDICATION
     Dates: start: 20121004
  9. DECADRON /CAN/ [Concomitant]
     Indication: PREMEDICATION
     Dates: start: 20121003
  10. GLUTAMINE [Concomitant]
     Dates: start: 20121004
  11. VITAMIN D [Concomitant]
     Dosage: DOSE:50000 UNIT(S)
     Dates: start: 20121003
  12. STOMATOLOGICALS, MOUTH PREPARATIONS [Concomitant]
     Dates: start: 20121007
  13. COMPAZINE [Concomitant]
     Dates: start: 20121006
  14. NEXIUM [Concomitant]
     Dates: start: 20121004
  15. BENADRYL /OLD FORM/ [Concomitant]
     Dates: start: 20121004
  16. LOPERAMIDE [Concomitant]
     Dosage: DAILY DOSE: 1-2 DF
     Dates: start: 20121008
  17. AUGMENTIN [Concomitant]
     Indication: BONE PAIN
     Dates: start: 20121012, end: 20121024
  18. TORADOL [Concomitant]
     Indication: BONE PAIN
     Dates: start: 20121116
  19. FLONASE [Concomitant]
     Dates: start: 20121114
  20. VICODIN [Concomitant]
     Indication: BONE PAIN
     Dates: start: 20121114
  21. CLARITIN [Concomitant]
     Indication: BONE PAIN
     Dates: start: 20121012

REACTIONS (2)
  - Dehydration [Recovered/Resolved]
  - Anaemia [Not Recovered/Not Resolved]
